FAERS Safety Report 7215518-6 (Version None)
Quarter: 2011Q1

REPORT INFORMATION
  Report Type: 
  Country: None (occurrence: None)
  Receive Date: 20110107
  Receipt Date: 20101230
  Transmission Date: 20110831
  Serious: Yes (Hospitalization)
  Sender: FDA-Public Use
  Company Number: B0691573A

PATIENT
  Sex: Male
  Weight: 3.1 kg

DRUGS (3)
  1. LEXOMIL [Suspect]
     Indication: PRODUCT USED FOR UNKNOWN INDICATION
     Dates: start: 20090625, end: 20100305
  2. LAMICTAL [Suspect]
     Indication: EPILEPSY
     Dosage: 200MG PER DAY
     Dates: start: 20090625, end: 20100305
  3. ASPEGIC 1000 [Suspect]
     Indication: PRODUCT USED FOR UNKNOWN INDICATION
     Dosage: 100MG PER DAY
     Dates: start: 20090625, end: 20100305

REACTIONS (6)
  - SEDATION [None]
  - RESPIRATORY DISTRESS [None]
  - DRUG EXPOSURE DURING PREGNANCY [None]
  - INTERSTITIAL LUNG DISEASE [None]
  - HYPOGLYCAEMIA [None]
  - ENTERAL NUTRITION [None]
